FAERS Safety Report 5529694-4 (Version None)
Quarter: 2007Q4

REPORT INFORMATION
  Report Type: 
  Country: None (occurrence: None)
  Receive Date: 20071129
  Receipt Date: 20071119
  Transmission Date: 20080405
  Serious: Yes (Hospitalization)
  Sender: FDA-Public Use
  Company Number: FR-PFIZER INC-2007097705

PATIENT
  Age: 48 Year
  Sex: Female
  Weight: 45 kg

DRUGS (1)
  1. LYRICA [Suspect]
     Indication: SCIATICA

REACTIONS (2)
  - BRAIN OEDEMA [None]
  - CEREBROVASCULAR ACCIDENT [None]
